FAERS Safety Report 25350963 (Version 1)
Quarter: 2025Q2

REPORT INFORMATION
  Report Type: Spontaneous
  Country: CN (occurrence: CN)
  Receive Date: 20250523
  Receipt Date: 20250523
  Transmission Date: 20250716
  Serious: Yes (Other)
  Sender: NOVO NORDISK
  Company Number: None

PATIENT
  Age: 29 Year
  Sex: Male
  Weight: 62 kg

DRUGS (1)
  1. RYZODEG 70/30 [Suspect]
     Active Substance: INSULIN ASPART\INSULIN DEGLUDEC
     Indication: Type 2 diabetes mellitus
     Dosage: 12 IU, QD
     Route: 058
     Dates: start: 20250425, end: 20250425

REACTIONS (5)
  - Rash [Recovering/Resolving]
  - Pruritus [Recovering/Resolving]
  - Lip swelling [Recovering/Resolving]
  - Chest discomfort [Recovering/Resolving]
  - Hypoaesthesia oral [Recovering/Resolving]

NARRATIVE: CASE EVENT DATE: 20250425
